FAERS Safety Report 14672897 (Version 2)
Quarter: 2018Q2

REPORT INFORMATION
  Report Type: Spontaneous
  Country: US (occurrence: US)
  Receive Date: 20180323
  Receipt Date: 20180403
  Transmission Date: 20180711
  Serious: Yes (Other)
  Sender: FDA-Public Use
  Company Number: US-AUROBINDO-AUR-APL-2018-015592

PATIENT
  Age: 62 Year
  Sex: Female

DRUGS (1)
  1. OMEPRAZOLE. [Suspect]
     Active Substance: OMEPRAZOLE
     Indication: ANTACID THERAPY
     Dosage: HIGH DOSE ()
     Route: 065

REACTIONS (6)
  - Complication associated with device [Recovered/Resolved]
  - Lipase increased [Recovered/Resolved]
  - Metabolic alkalosis [Unknown]
  - Candida infection [Unknown]
  - Streptococcal infection [Unknown]
  - Abdominal pain [Recovered/Resolved]
